FAERS Safety Report 14660476 (Version 1)
Quarter: 2018Q1

REPORT INFORMATION
  Report Type: Spontaneous
  Country: BE (occurrence: BE)
  Receive Date: 20180320
  Receipt Date: 20180320
  Transmission Date: 20180509
  Serious: Yes (Other)
  Sender: FDA-Public Use
  Company Number: BE-SA-2018SA075249

PATIENT
  Age: 56 Year
  Sex: Male

DRUGS (5)
  1. BACLOFEN. [Concomitant]
     Active Substance: BACLOFEN
     Indication: MUSCLE SPASTICITY
     Route: 065
  2. LEMTRADA [Suspect]
     Active Substance: ALEMTUZUMAB
     Indication: RELAPSING-REMITTING MULTIPLE SCLEROSIS
     Route: 041
     Dates: start: 201601, end: 201601
  3. TIZANIDINE. [Concomitant]
     Active Substance: TIZANIDINE
     Indication: MUSCLE SPASTICITY
     Route: 065
  4. AMINOPYRIDINE [Concomitant]
     Active Substance: DALFAMPRIDINE
     Indication: MUSCLE SPASTICITY
     Route: 065
  5. LEMTRADA [Suspect]
     Active Substance: ALEMTUZUMAB
     Indication: RELAPSING-REMITTING MULTIPLE SCLEROSIS
     Route: 041
     Dates: start: 201501, end: 201501

REACTIONS (3)
  - Expanded disability status scale score increased [Unknown]
  - Ataxia [Not Recovered/Not Resolved]
  - Fatigue [Not Recovered/Not Resolved]
